FAERS Safety Report 6464995-7 (Version None)
Quarter: 2009Q4

REPORT INFORMATION
  Report Type: 
  Country: None (occurrence: None)
  Receive Date: 20091201
  Receipt Date: 20091124
  Transmission Date: 20100525
  Serious: Yes (Hospitalization, Other)
  Sender: FDA-Public Use
  Company Number: US-B.I. PHARMACEUTICALS,INC./RIDGEFIELD-2009-BP-13699BP

PATIENT
  Age: 89 Year
  Sex: Female

DRUGS (1)
  1. MICARDIS [Suspect]

REACTIONS (3)
  - CARDIAC FAILURE CONGESTIVE [None]
  - HEART VALVE REPLACEMENT [None]
  - HYPERTROPHIC CARDIOMYOPATHY [None]
